FAERS Safety Report 13765352 (Version 1)
Quarter: 2017Q3

REPORT INFORMATION
  Report Type: Spontaneous
  Country: GB (occurrence: GB)
  Receive Date: 20170718
  Receipt Date: 20170718
  Transmission Date: 20171127
  Serious: Yes (Other)
  Sender: FDA-Public Use
  Company Number: GB-PFIZER INC-225759

PATIENT
  Sex: Female

DRUGS (6)
  1. SALBUTAMOL [Concomitant]
     Active Substance: ALBUTEROL
  2. FLUOXETINE [Concomitant]
     Active Substance: FLUOXETINE HYDROCHLORIDE
  3. CODEINE [Concomitant]
     Active Substance: CODEINE
  4. OMEPRAZOLE. [Concomitant]
     Active Substance: OMEPRAZOLE
  5. METHOTREXATE SODIUM. [Suspect]
     Active Substance: METHOTREXATE SODIUM
     Indication: RHEUMATOID ARTHRITIS
     Dosage: 15 MG, UNK
     Route: 048
     Dates: start: 20081205, end: 20090226
  6. FENTANYL. [Concomitant]
     Active Substance: FENTANYL

REACTIONS (4)
  - Pneumonitis [Recovered/Resolved with Sequelae]
  - Dyspnoea [Unknown]
  - Interstitial lung disease [Unknown]
  - Alveolitis [Unknown]
